FAERS Safety Report 18891450 (Version 1)
Quarter: 2021Q1

REPORT INFORMATION
  Report Type: Report from Study
  Country: GB (occurrence: GB)
  Receive Date: 20210215
  Receipt Date: 20210215
  Transmission Date: 20210420
  Serious: Yes (Other)
  Sender: FDA-Public Use
  Company Number: GB-SAMSUNG BIOEPIS-SB-2021-03560

PATIENT
  Sex: Female

DRUGS (2)
  1. IMRALDI [Suspect]
     Active Substance: ADALIMUMAB
     Indication: PSORIASIS
     Route: 058
     Dates: start: 20200825
  2. IMRALDI [Suspect]
     Active Substance: ADALIMUMAB
     Indication: SPONDYLOARTHROPATHY

REACTIONS (4)
  - Product use in unapproved indication [Unknown]
  - Product dispensing error [Unknown]
  - COVID-19 [Unknown]
  - Adverse drug reaction [Unknown]
